FAERS Safety Report 5075573-9 (Version None)
Quarter: 2006Q3

REPORT INFORMATION
  Report Type: 
  Country: None (occurrence: None)
  Receive Date: 20060809
  Receipt Date: 20060802
  Transmission Date: 20061208
  Serious: Yes (Hospitalization)
  Sender: FDA-Public Use
  Company Number: PHBS2006ES11362

PATIENT
  Age: 75 Year
  Sex: Male

DRUGS (5)
  1. VOLTAREN [Suspect]
     Indication: GOUTY ARTHRITIS
     Dosage: 150 MG/DAY
     Route: 048
     Dates: start: 20060311, end: 20060314
  2. ACOVIL [Suspect]
     Indication: HYPERTENSION
     Dosage: 10 MG/DAY
     Route: 048
     Dates: start: 20060306, end: 20060313
  3. ACETAMINOPHEN [Concomitant]
  4. AMOXICILLIN + CLAVULANIC ACID [Concomitant]
  5. DIPOTASSIUM CLORAZEPATE [Concomitant]

REACTIONS (4)
  - BLOOD CREATININE INCREASED [None]
  - BLOOD UREA INCREASED [None]
  - DRUG INTERACTION [None]
  - RENAL FAILURE ACUTE [None]
